FAERS Safety Report 6400013-4 (Version None)
Quarter: 2009Q4

REPORT INFORMATION
  Report Type: 
  Country: None (occurrence: None)
  Receive Date: 20091008
  Receipt Date: 20091008
  Transmission Date: 20100525
  Serious: Yes (Life-Threatening, Other)
  Sender: FDA-Public Use
  Company Number: None

PATIENT
  Age: 48 Year
  Sex: Female
  Weight: 61.2356 kg

DRUGS (2)
  1. LYRICA [Suspect]
     Indication: FIBROMYALGIA
     Dosage: 1 3
     Dates: start: 20090922, end: 20090925
  2. LYRICA [Suspect]
     Indication: MYALGIA
     Dosage: 1 3
     Dates: start: 20090922, end: 20090925

REACTIONS (2)
  - CRYING [None]
  - DEPRESSION [None]
